FAERS Safety Report 26043162 (Version 2)
Quarter: 2025Q4

REPORT INFORMATION
  Report Type: Spontaneous
  Country: US (occurrence: US)
  Receive Date: 20251113
  Receipt Date: 20251117
  Transmission Date: 20260117
  Serious: Yes (Other)
  Sender: PFIZER
  Company Number: US-PFIZER INC-PV202500133971

PATIENT
  Age: 66 Year

DRUGS (1)
  1. TIKOSYN [Suspect]
     Active Substance: DOFETILIDE
     Dosage: 500 UG, 2X/DAY (TAKE 2 TABLETS 2 TIMES DAILY)

REACTIONS (2)
  - Shock [Unknown]
  - Product dose omission in error [Unknown]
